FAERS Safety Report 4536718-X (Version None)
Quarter: 2004Q4

REPORT INFORMATION
  Report Type: 
  Country: None (occurrence: None)
  Receive Date: 20041222
  Receipt Date: 20041222
  Transmission Date: 20050328
  Serious: Yes (Hospitalization)
  Sender: FDA-Public Use
  Company Number: None

PATIENT
  Age: 23 Year
  Sex: Female
  Weight: 88.4514 kg

DRUGS (11)
  1. PERCOCET [Suspect]
     Indication: PAIN
     Dosage: 5/325MG OTO
     Route: 050
     Dates: start: 20040916
  2. BACITRACIN IRRIGATION W/ GENTAMICIN [Concomitant]
  3. PREMARIN CREAM [Concomitant]
  4. INDIGO CARMINE [Concomitant]
  5. TORADOL [Concomitant]
  6. DOCUSATE [Concomitant]
  7. LEVOFLOXACIN [Concomitant]
  8. MOTRIN [Concomitant]
  9. PERCOCET [Concomitant]
  10. VIT E [Concomitant]
  11. ANCEF [Concomitant]

REACTIONS (4)
  - MEDICATION ERROR [None]
  - PHARYNGOLARYNGEAL PAIN [None]
  - PRURITUS [None]
  - URTICARIA [None]
